FAERS Safety Report 5084803-9 (Version None)
Quarter: 2006Q3

REPORT INFORMATION
  Report Type: 
  Country: None (occurrence: None)
  Receive Date: 20060821
  Receipt Date: 20060809
  Transmission Date: 20061208
  Serious: Yes (Hospitalization)
  Sender: FDA-Public Use
  Company Number: CH-BRISTOL-MYERS SQUIBB COMPANY-13479845

PATIENT
  Age: 30 Year
  Sex: Male

DRUGS (5)
  1. STOCRIN CAPS [Interacting]
     Indication: HIV INFECTION
     Route: 048
  2. DIDANOSINE [Suspect]
     Indication: HIV INFECTION
  3. VALPROIC ACID [Interacting]
     Indication: BIPOLAR DISORDER
     Dosage: INITIATED @ 1.5 MG/D INC. TO 2MG/D TO 2.5 MG/D TO 3 MG/D TO 3.5 MG/D TO 4 MG/D, REDUCED TO 1.5 MG/D.
     Route: 048
  4. LAMIVUDINE [Suspect]
     Indication: HIV INFECTION
  5. METHADONE HCL [Concomitant]

REACTIONS (4)
  - DIARRHOEA [None]
  - DRUG INTERACTION [None]
  - DRUG LEVEL DECREASED [None]
  - MANIA [None]
